FAERS Safety Report 9998246 (Version 1)
Quarter: 2014Q1

REPORT INFORMATION
  Report Type: Report from Study
  Country: US (occurrence: US)
  Receive Date: 20140311
  Receipt Date: 20140311
  Transmission Date: 20141002
  Serious: Yes (Other)
  Sender: FDA-Public Use
  Company Number: PHEH2013US026782

PATIENT
  Sex: Female

DRUGS (8)
  1. AFINITOR [Suspect]
     Indication: ANGIOMYOLIPOMA
     Dosage: 10 MG, DAILY
     Route: 048
     Dates: end: 20131209
  2. COZAAR [Concomitant]
  3. SODIUM BICARBONATE [Concomitant]
  4. ADDERALL [Concomitant]
  5. KEPPRA [Concomitant]
  6. TOPROL [Concomitant]
  7. LIPITOR [Concomitant]
  8. FERROUS SULFATE [Concomitant]

REACTIONS (4)
  - Loss of consciousness [Unknown]
  - Hyperglycaemia [Unknown]
  - Hypertension [Unknown]
  - Herpes zoster [Unknown]
